FAERS Safety Report 20929278 (Version 2)
Quarter: 2022Q2

REPORT INFORMATION
  Report Type: Spontaneous
  Country: EG (occurrence: EG)
  Receive Date: 20220608
  Receipt Date: 20220622
  Transmission Date: 20220720
  Serious: Yes (Other)
  Sender: FDA-Public Use
  Company Number: EG-NOVOPROD-924224

PATIENT
  Age: 69 Year
  Sex: Male
  Weight: 112 kg

DRUGS (2)
  1. INSULIN HUMAN [Suspect]
     Active Substance: INSULIN HUMAN
     Indication: Diabetes mellitus
     Dosage: 110 IU, QD (70 IU MORNING + 40IU NIGHT)
     Route: 058
     Dates: start: 1996
  2. DAPAGLIFLOZIN [Concomitant]
     Active Substance: DAPAGLIFLOZIN
     Indication: Product used for unknown indication
     Dosage: UNK
     Route: 065

REACTIONS (5)
  - Cataract [Recovered/Resolved]
  - Eye disorder [Recovered/Resolved]
  - Dermal cyst [Recovered/Resolved]
  - Eye laser surgery [Unknown]
  - Diabetic neuropathy [Unknown]

NARRATIVE: CASE EVENT DATE: 20210101
